FAERS Safety Report 11096651 (Version 4)
Quarter: 2016Q2

REPORT INFORMATION
  Report Type: Spontaneous
  Country: BR (occurrence: BR)
  Receive Date: 20150507
  Receipt Date: 20160420
  Transmission Date: 20160815
  Serious: Yes (Hospitalization)
  Sender: FDA-Public Use
  Company Number: BR-SA-2015SA059814

PATIENT
  Sex: Female

DRUGS (2)
  1. LANTUS [Suspect]
     Active Substance: INSULIN GLARGINE
     Indication: DIABETES MELLITUS
     Route: 065
     Dates: start: 201411
  2. INSULIN, REGULAR [Concomitant]
     Active Substance: INSULIN NOS

REACTIONS (2)
  - Infarction [Recovering/Resolving]
  - Bacterial infection [Recovered/Resolved]

NARRATIVE: CASE EVENT DATE: 201501
